FAERS Safety Report 23135283 (Version 1)
Quarter: 2023Q4

REPORT INFORMATION
  Report Type: Spontaneous
  Country: JP (occurrence: None)
  Receive Date: 20231101
  Receipt Date: 20231101
  Transmission Date: 20240109
  Serious: Yes (Other)
  Sender: FDA-Public Use
  Company Number: 2023A244405

PATIENT
  Sex: Male

DRUGS (2)
  1. IMFINZI [Suspect]
     Active Substance: DURVALUMAB
     Indication: Non-small cell lung cancer
     Dosage: DOSE UNKNOWN
     Route: 041
  2. IMJUDO [Suspect]
     Active Substance: TREMELIMUMAB\TREMELIMUMAB-ACTL
     Indication: Non-small cell lung cancer
     Dosage: DOSE UNKNOWN
     Route: 041

REACTIONS (3)
  - Cytokine release syndrome [Unknown]
  - Inflammation [Unknown]
  - Pyrexia [Unknown]
